FAERS Safety Report 5774917-X (Version None)
Quarter: 2008Q2

REPORT INFORMATION
  Report Type: 
  Country: None (occurrence: None)
  Receive Date: 20080616
  Receipt Date: 20080616
  Transmission Date: 20081010
  Serious: Yes (Hospitalization)
  Sender: FDA-Public Use
  Company Number: None

PATIENT
  Sex: Female
  Weight: 85.45 kg

DRUGS (4)
  1. CISPLATIN [Suspect]
     Dosage: 93 MG
  2. DOXORUBICIN HYDROCHLORIDE [Suspect]
     Dosage: 84 MG
  3. TAXOL [Suspect]
     Dosage: 298 MG
  4. NEULASTA [Suspect]
     Dosage: 6 MG

REACTIONS (12)
  - BLOOD LACTIC ACID INCREASED [None]
  - COAGULOPATHY [None]
  - COLITIS ISCHAEMIC [None]
  - CONFUSIONAL STATE [None]
  - DRUG TOXICITY [None]
  - HYPERGLYCAEMIA [None]
  - HYPERNATRAEMIA [None]
  - MENTAL STATUS CHANGES [None]
  - NEUTROPENIA [None]
  - RENAL IMPAIRMENT [None]
  - SEPSIS [None]
  - THROMBOCYTOPENIA [None]
